FAERS Safety Report 7525921-2 (Version None)
Quarter: 2011Q2

REPORT INFORMATION
  Report Type: 
  Country: None (occurrence: None)
  Receive Date: 20110606
  Receipt Date: 20110527
  Transmission Date: 20111010
  Serious: Yes (Disabling)
  Sender: FDA-Public Use
  Company Number: B0724149A

PATIENT
  Sex: Male

DRUGS (1)
  1. DUODART [Suspect]
     Dosage: 1CAP PER DAY
     Route: 048
     Dates: start: 20101001, end: 20110330

REACTIONS (2)
  - DEPRESSION [None]
  - APATHY [None]
